FAERS Safety Report 4810783-4 (Version None)
Quarter: 2005Q4

REPORT INFORMATION
  Report Type: 
  Country: None (occurrence: None)
  Receive Date: 20051024
  Receipt Date: 20051014
  Transmission Date: 20060501
  Serious: Yes (Hospitalization)
  Sender: FDA-Public Use
  Company Number: KII-2005-0019049

PATIENT
  Age: 2 Year
  Sex: Male

DRUGS (1)
  1. MORPHINE [Suspect]
     Indication: ACCIDENTAL EXPOSURE
     Dosage: UNK, SEE TEXT, ORAL
     Route: 048
     Dates: start: 20050920

REACTIONS (4)
  - ACCIDENTAL DRUG INTAKE BY CHILD [None]
  - HEART RATE DECREASED [None]
  - LETHARGY [None]
  - MIOSIS [None]
